FAERS Safety Report 15289793 (Version 1)
Quarter: 2018Q3

REPORT INFORMATION
  Report Type: Spontaneous
  Country: US (occurrence: US)
  Receive Date: 20180817
  Receipt Date: 20180817
  Transmission Date: 20181010
  Serious: Yes (Other)
  Sender: FDA-Public Use
  Company Number: US-NEPHRON STERILE COMPOUNDING CENTER-2053875

PATIENT

DRUGS (1)
  1. PF?ROCURONIUM BROMIDE 50 MG/5 ML (10 MG/ML) [Suspect]
     Active Substance: ROCURONIUM BROMIDE
     Indication: SURGERY

REACTIONS (1)
  - Drug ineffective [None]
